FAERS Safety Report 4447790-X (Version None)
Quarter: 2004Q3

REPORT INFORMATION
  Report Type: 
  Country: None (occurrence: None)
  Receive Date: 20040729
  Receipt Date: 20040129
  Transmission Date: 20050211
  Serious: Yes (Hospitalization)
  Sender: FDA-Public Use
  Company Number: IGH/04/03/UNK

PATIENT
  Age: 79 Year
  Sex: Male

DRUGS (2)
  1. IMMUNE GLOBULIN INTRAVENOUS (HUMAN) [Suspect]
     Indication: MULTIPLE MYELOMA
     Dosage: 21 G ONCE IV
     Route: 040
     Dates: start: 20031230, end: 20031230
  2. CYCLOPHOSPHAMIDE [Concomitant]

REACTIONS (3)
  - ANAPHYLACTOID REACTION [None]
  - FACE OEDEMA [None]
  - TACHYCARDIA [None]
